FAERS Safety Report 20459990 (Version 1)
Quarter: 2022Q1

REPORT INFORMATION
  Report Type: Report from Study
  Country: JP (occurrence: JP)
  Receive Date: 20220211
  Receipt Date: 20220211
  Transmission Date: 20220424
  Serious: Yes (Death, Hospitalization)
  Sender: FDA-Public Use
  Company Number: JP-CHUGAI-C2019008483ROCHE

PATIENT
  Age: 67 Year
  Sex: Male
  Weight: 54 kg

DRUGS (11)
  1. ATEZOLIZUMAB [Suspect]
     Active Substance: ATEZOLIZUMAB
     Indication: Non-small cell lung cancer
     Route: 041
     Dates: start: 20190405, end: 20200131
  2. BEVACIZUMAB [Suspect]
     Active Substance: BEVACIZUMAB
     Indication: Non-small cell lung cancer
     Route: 041
     Dates: start: 20190405, end: 20200131
  3. VONOPRAZAN FUMARATE [Concomitant]
     Active Substance: VONOPRAZAN FUMARATE
     Indication: Gastritis prophylaxis
     Dosage: BEGINNING OF DOSAGE DAY: INVESTIGATIONAL AGENT BEFORE ADMINISTRATION
     Route: 048
  4. METOCLOPRAMIDE [Concomitant]
     Active Substance: METOCLOPRAMIDE
     Indication: Nausea
     Dosage: SINGLE USE AND BEGINNING OF DOSAGE DAY: INVESTIGATIONAL AGENT BEFORE ?ADMINISTRATION
     Route: 048
  5. DOMPERIDONE [Concomitant]
     Active Substance: DOMPERIDONE
     Indication: Nausea
     Dosage: BEGINNING OF DOSAGE DAY: INVESTIGATIONAL AGENT BEFORE ADMINISTRATION
     Route: 048
  6. FENTANYL CITRATE [Concomitant]
     Active Substance: FENTANYL CITRATE
     Indication: Cancer pain
     Dosage: BEGINNING OF DOSAGE DAY: INVESTIGATIONAL AGENT BEFORE ADMINISTRATION
     Route: 062
  7. BROTIZOLAM [Concomitant]
     Active Substance: BROTIZOLAM
     Indication: Insomnia
     Dosage: SINGLE USE AND BEGINNING OF DOSAGE DAY: INVESTIGATIONAL AGENT BEFORE ?ADMINISTRATION
     Route: 048
  8. LORAZEPAM [Concomitant]
     Active Substance: LORAZEPAM
     Indication: Anxiety
     Dosage: BEGINNING OF DOSAGE DAY: INVESTIGATIONAL AGENT BEFORE ADMINISTRATION
     Route: 048
  9. MAGNESIUM OXIDE [Concomitant]
     Active Substance: MAGNESIUM OXIDE
     Indication: Constipation
     Dosage: SINGLE USE AND BEGINNING OF DOSAGE DAY: INVESTIGATIONAL AGENT BEFORE ?ADMINISTRATION
     Route: 048
  10. SODIUM PICOSULFATE [Concomitant]
     Active Substance: SODIUM PICOSULFATE
     Indication: Constipation
     Dosage: ADMINISTRATION START: BEFORE STUDY DRUG ADMINISTRATION
     Route: 048
  11. LOXOPROFEN SODIUM DIHYDRATE [Concomitant]
     Active Substance: LOXOPROFEN SODIUM DIHYDRATE
     Indication: Cancer pain
     Dosage: BEGINNING OF DOSAGE DAY: INVESTIGATIONAL AGENT BEFORE ADMINISTRATION
     Route: 048

REACTIONS (2)
  - Anxiety [Recovered/Resolved]
  - Death [Fatal]

NARRATIVE: CASE EVENT DATE: 20190419
